FAERS Safety Report 7742721-9 (Version None)
Quarter: 2011Q3

REPORT INFORMATION
  Report Type: 
  Country: None (occurrence: None)
  Receive Date: 20110912
  Receipt Date: 20110907
  Transmission Date: 20111222
  Serious: Yes (Other)
  Sender: FDA-Public Use
  Company Number: US-BRISTOL-MYERS SQUIBB COMPANY-16041303

PATIENT
  Sex: Female

DRUGS (1)
  1. SPRYCEL [Suspect]
     Dosage: PER METERED SQUARE

REACTIONS (1)
  - NEPHRITIC SYNDROME [None]
